FAERS Safety Report 9800337 (Version 3)
Quarter: 2016Q3

REPORT INFORMATION
  Report Type: Spontaneous
  Country: US (occurrence: US)
  Receive Date: 20140106
  Receipt Date: 20160715
  Transmission Date: 20161109
  Serious: Yes (Other)
  Sender: FDA-Public Use
  Company Number: US-009507513-1312USA010655

PATIENT
  Age: 18 Year
  Sex: Female
  Weight: 61.22 kg

DRUGS (1)
  1. IMPLANON [Suspect]
     Active Substance: ETONOGESTREL
     Indication: CONTRACEPTION
     Dosage: LEFT ARM INSERTION
     Route: 030
     Dates: start: 201203, end: 201401

REACTIONS (7)
  - Haematemesis [Unknown]
  - Device deployment issue [Recovered/Resolved]
  - Hypoaesthesia [Unknown]
  - Migration of implanted drug [Recovered/Resolved]
  - Difficulty removing drug implant [Recovered/Resolved]
  - Incorrect route of drug administration [Unknown]
  - Pain in extremity [Unknown]

NARRATIVE: CASE EVENT DATE: 201203
